FAERS Safety Report 9503422 (Version 1)
Quarter: 2013Q3

REPORT INFORMATION
  Report Type: Spontaneous
  Country: US (occurrence: US)
  Receive Date: 20130906
  Receipt Date: 20130906
  Transmission Date: 20140515
  Serious: No
  Sender: FDA-Public Use
  Company Number: US-BAYER-2013-106942

PATIENT
  Age: 31 Year
  Sex: Female
  Weight: 56.69 kg

DRUGS (5)
  1. ALEVE CAPLET [Suspect]
     Dosage: UNK DF, UNK
     Route: 048
  2. ALEVE CAPLET [Suspect]
     Dosage: 11 OR 12 DF, ONCE
     Route: 048
     Dates: start: 20130830, end: 20130830
  3. CELLCEPT [Concomitant]
  4. RISPERIDONE [Concomitant]
  5. CLONAZEPAM [Concomitant]

REACTIONS (4)
  - Overdose [None]
  - Headache [Recovered/Resolved]
  - Abdominal pain upper [Recovered/Resolved]
  - Nausea [Recovered/Resolved]
